FAERS Safety Report 4958209-4 (Version None)
Quarter: 2006Q1

REPORT INFORMATION
  Report Type: 
  Country: None (occurrence: None)
  Receive Date: 20060330
  Receipt Date: 20060323
  Transmission Date: 20060701
  Serious: Yes (Hospitalization)
  Sender: FDA-Public Use
  Company Number: SE-ROCHE-441417

PATIENT
  Age: 57 Year
  Sex: Male

DRUGS (7)
  1. PEGASYS [Suspect]
     Indication: HEPATITIS
     Route: 042
     Dates: start: 20050524, end: 20050809
  2. COPEGUS [Suspect]
     Indication: HEPATITIS
     Route: 048
     Dates: start: 20050524, end: 20050809
  3. BISOPROLOL ALPHARMA [Concomitant]
     Dosage: DRUG WAS REPORTED AS BISOPROLOL ALPHARMA.
  4. ALVEDON [Concomitant]
     Dosage: DRUG WAS REPORTED AS ALVEDON FORTE.
  5. DEXOFEN [Concomitant]
  6. TROMBYL [Concomitant]
  7. 2 UNSPECIFIED DRUGS [Concomitant]

REACTIONS (1)
  - CEREBRAL INFARCTION [None]
